FAERS Safety Report 5727502-X (Version None)
Quarter: 2008Q2

REPORT INFORMATION
  Report Type: 
  Country: None (occurrence: None)
  Receive Date: 20080505
  Receipt Date: 20080425
  Transmission Date: 20081010
  Serious: Yes (Other)
  Sender: FDA-Public Use
  Company Number: DE-BRISTOL-MYERS SQUIBB COMPANY-14173256

PATIENT
  Sex: Female

DRUGS (1)
  1. ENDOXAN [Suspect]
     Indication: BREAST CANCER
     Dosage: STARTE DATE IS UNKNOWN.
     Dates: start: 20080301, end: 20080301

REACTIONS (2)
  - CARDIAC DISORDER [None]
  - TROPONIN INCREASED [None]
